FAERS Safety Report 10476386 (Version 2)
Quarter: 2014Q3

REPORT INFORMATION
  Report Type: Report from Study
  Country: DE (occurrence: DE)
  Receive Date: 20140925
  Receipt Date: 20140925
  Transmission Date: 20150326
  Serious: Yes (Hospitalization, Other)
  Sender: FDA-Public Use
  Company Number: DE-ABBVIE-14K-062-1262181-00

PATIENT
  Age: 26 Year
  Sex: Female
  Weight: 97 kg

DRUGS (4)
  1. SALOFALK [Concomitant]
     Active Substance: MESALAMINE
     Indication: PRODUCT USED FOR UNKNOWN INDICATION
  2. HUMIRA [Suspect]
     Active Substance: ADALIMUMAB
     Indication: CROHN^S DISEASE
     Route: 058
  3. PREDNISOLONE. [Concomitant]
     Active Substance: PREDNISOLONE
     Indication: CROHN^S DISEASE
  4. AZATHIOPRINE. [Suspect]
     Active Substance: AZATHIOPRINE
     Indication: CROHN^S DISEASE
     Dates: start: 2003, end: 201403

REACTIONS (8)
  - Large intestinal stenosis [Recovered/Resolved]
  - General physical health deterioration [Recovered/Resolved]
  - Liver function test abnormal [Unknown]
  - Faecal calprotectin increased [Unknown]
  - Nutritional condition abnormal [Unknown]
  - Anal fistula [Recovered/Resolved]
  - Crohn^s disease [Recovered/Resolved]
  - Liver disorder [Unknown]

NARRATIVE: CASE EVENT DATE: 201208
